FAERS Safety Report 10464452 (Version 1)
Quarter: 2014Q3

REPORT INFORMATION
  Report Type: Spontaneous
  Country: CA (occurrence: CA)
  Receive Date: 20140919
  Receipt Date: 20140919
  Transmission Date: 20150326
  Serious: Yes (Hospitalization)
  Sender: FDA-Public Use
  Company Number: CA-BAXTER-2014BAX055469

PATIENT
  Age: 41 Year
  Sex: Male
  Weight: 76 kg

DRUGS (2)
  1. DIANEAL W/ DEXTROSE 1.5% [Suspect]
     Active Substance: CALCIUM CHLORIDE\DEXTROSE\MAGNESIUM CHLORIDE\SODIUM CHLORIDE\SODIUM LACTATE
     Indication: RENAL TRANSPLANT FAILURE
     Route: 033
     Dates: start: 1977, end: 20140827
  2. PHYSIONEAL 40 GLUCOSE 2.27% SOLUTION FOR PERITONEAL DIALYSIS [Suspect]
     Active Substance: DEXTROSE\SODIUM BICARBONATE\SODIUM CHLORIDE\SODIUM LACTATE
     Indication: RENAL TRANSPLANT FAILURE
     Route: 033
     Dates: start: 20140827

REACTIONS (8)
  - Asthenia [Not Recovered/Not Resolved]
  - Coma [Recovered/Resolved]
  - Septic shock [Recovered/Resolved]
  - Immobile [Not Recovered/Not Resolved]
  - Disease recurrence [Recovered/Resolved]
  - Renal transplant failure [Recovered/Resolved]
  - Convulsion [Recovered/Resolved]
  - Cellulitis [Recovered/Resolved]

NARRATIVE: CASE EVENT DATE: 201309
